FAERS Safety Report 21681271 (Version 2)
Quarter: 2022Q4

REPORT INFORMATION
  Report Type: Spontaneous
  Country: US (occurrence: US)
  Receive Date: 20221205
  Receipt Date: 20221206
  Transmission Date: 20230112
  Serious: No
  Sender: FDA-Public Use
  Company Number: US-002147023-NVSC2022US279536

PATIENT
  Sex: Female

DRUGS (2)
  1. ALPRAZOLAM [Suspect]
     Active Substance: ALPRAZOLAM
     Indication: Product used for unknown indication
     Dosage: 0.5 MG, TID (START 24HRS AGO)
     Route: 065
     Dates: start: 20221128
  2. ATENOLOL [Suspect]
     Active Substance: ATENOLOL
     Indication: Product used for unknown indication
     Dosage: UNK
     Route: 065

REACTIONS (11)
  - Diarrhoea [Unknown]
  - Feeling abnormal [Unknown]
  - Chills [Unknown]
  - Feeling of body temperature change [Unknown]
  - Nausea [Unknown]
  - Anxiety [Unknown]
  - Vomiting [Unknown]
  - Withdrawal syndrome [Unknown]
  - Product physical issue [Unknown]
  - Poor quality product administered [Unknown]
  - Wrong technique in product usage process [Unknown]
